FAERS Safety Report 6022761-0 (Version None)
Quarter: 2008Q4

REPORT INFORMATION
  Report Type: 
  Country: None (occurrence: None)
  Receive Date: 20081230
  Receipt Date: 20081223
  Transmission Date: 20090506
  Serious: Yes (Death)
  Sender: FDA-Public Use
  Company Number: US-BAYER-200839699NA

PATIENT
  Age: 91 Year
  Sex: Female

DRUGS (1)
  1. AVELOX [Suspect]
     Indication: BRONCHITIS

REACTIONS (5)
  - CLOSTRIDIUM DIFFICILE COLITIS [None]
  - COLONIC OBSTRUCTION [None]
  - DIARRHOEA [None]
  - LEUKOCYTOSIS [None]
  - MALAISE [None]
